FAERS Safety Report 12472233 (Version 1)
Quarter: 2016Q2

REPORT INFORMATION
  Report Type: Spontaneous
  Country: US (occurrence: US)
  Receive Date: 20160616
  Receipt Date: 20160616
  Transmission Date: 20160815
  Serious: Yes (Other)
  Sender: FDA-Public Use
  Company Number: US-009507513-1606USA003073

PATIENT
  Age: 81 Year
  Sex: Female

DRUGS (3)
  1. VANCOMYCIN [Suspect]
     Active Substance: VANCOMYCIN
     Indication: CLOSTRIDIUM DIFFICILE COLITIS
     Dosage: 250 MG, QD
     Route: 048
     Dates: start: 201510, end: 2015
  2. DIFICID [Suspect]
     Active Substance: FIDAXOMICIN
     Indication: CLOSTRIDIUM DIFFICILE COLITIS
     Dosage: 200 MG, TWICE DAILY FOR 10 DAYS
     Route: 048
     Dates: start: 20151023, end: 20151101
  3. DIFICID [Suspect]
     Active Substance: FIDAXOMICIN
     Dosage: 200 MG, ONCE DAILY FOR 20 DAYS
     Route: 048
     Dates: start: 20151102, end: 20151121

REACTIONS (2)
  - Clostridium difficile colitis [Not Recovered/Not Resolved]
  - Incorrect drug administration duration [Unknown]

NARRATIVE: CASE EVENT DATE: 20151102
